FAERS Safety Report 10098482 (Version 1)
Quarter: 2014Q2

REPORT INFORMATION
  Report Type: Spontaneous
  Country: US (occurrence: US)
  Receive Date: 20140423
  Receipt Date: 20140423
  Transmission Date: 20141212
  Serious: No
  Sender: FDA-Public Use
  Company Number: US-PFIZER INC-2014111166

PATIENT
  Sex: Female

DRUGS (7)
  1. GEODON [Suspect]
     Dosage: UNK
  2. MORPHINE SULFATE [Suspect]
     Dosage: UNK
  3. CREON [Suspect]
     Dosage: UNK
  4. SEROQUEL [Suspect]
     Dosage: UNK
  5. TEGRETOL [Suspect]
     Dosage: UNK
  6. ABILIFY [Suspect]
     Dosage: UNK
  7. LEXAPRO [Suspect]
     Dosage: UNK

REACTIONS (1)
  - Drug hypersensitivity [Unknown]
